FAERS Safety Report 4496946-9 (Version None)
Quarter: 2004Q4

REPORT INFORMATION
  Report Type: 
  Country: None (occurrence: None)
  Receive Date: 20041109
  Receipt Date: 20041103
  Transmission Date: 20050328
  Serious: Yes (Life-Threatening)
  Sender: FDA-Public Use
  Company Number: GB-MERCK-0411GBR00049

PATIENT
  Age: 59 Year
  Sex: Male

DRUGS (4)
  1. VIOXX [Suspect]
     Indication: RHEUMATOID ARTHRITIS
     Route: 048
     Dates: start: 20040109, end: 20041001
  2. ACETAMINOPHEN AND DIHYDROCODEINE BITARTRATE [Concomitant]
     Indication: RHEUMATOID ARTHRITIS
     Route: 048
     Dates: start: 20031024
  3. METHOTREXATE [Concomitant]
     Indication: RHEUMATOID ARTHRITIS
     Route: 048
     Dates: start: 20040223
  4. PREDNISOLONE [Concomitant]
     Route: 048
     Dates: start: 20040223

REACTIONS (1)
  - TRANSIENT ISCHAEMIC ATTACK [None]
